FAERS Safety Report 7298933-4 (Version None)
Quarter: 2011Q1

REPORT INFORMATION
  Report Type: 
  Country: None (occurrence: None)
  Receive Date: 20110217
  Receipt Date: 20110214
  Transmission Date: 20110831
  Serious: Yes (Other)
  Sender: FDA-Public Use
  Company Number: US-ROCHE-759765

PATIENT
  Sex: Female

DRUGS (2)
  1. PEGASYS [Suspect]
     Indication: HEPATITIS C
     Route: 065
  2. RIBASPHERE [Suspect]
     Indication: HEPATITIS C
     Route: 065

REACTIONS (4)
  - GAIT DISTURBANCE [None]
  - DYSARTHRIA [None]
  - MIGRAINE [None]
  - INCOHERENT [None]
